FAERS Safety Report 4597538-3 (Version None)
Quarter: 2005Q1

REPORT INFORMATION
  Report Type: 
  Country: None (occurrence: None)
  Receive Date: 20050228
  Receipt Date: 20050228
  Transmission Date: 20050727
  Serious: Yes (Hospitalization)
  Sender: FDA-Public Use
  Company Number: None

PATIENT
  Age: 31 Year
  Sex: Female

DRUGS (1)
  1. DIVALPROEX SODIUM [Suspect]

REACTIONS (2)
  - DYSPNOEA [None]
  - ERYTHEMA MULTIFORME [None]
